FAERS Safety Report 17602705 (Version 1)
Quarter: 2020Q1

REPORT INFORMATION
  Report Type: Spontaneous
  Country: ES (occurrence: ES)
  Receive Date: 20200330
  Receipt Date: 20200330
  Transmission Date: 20200409
  Serious: Yes (Life-Threatening, Other)
  Sender: FDA-Public Use
  Company Number: ES-AUROBINDO-AUR-APL-2020-015806

PATIENT
  Age: 6 Month
  Sex: Female
  Weight: 6 kg

DRUGS (2)
  1. FLECAINIDE [Suspect]
     Active Substance: FLECAINIDE
     Indication: SUPRAVENTRICULAR TACHYCARDIA
     Dosage: 12 MILLIGRAM, TWO TIMES A DAY
     Route: 048
     Dates: start: 20190903, end: 20200212
  2. PROPRANOLOL [Interacting]
     Active Substance: PROPRANOLOL HYDROCHLORIDE
     Indication: SUPRAVENTRICULAR TACHYCARDIA
     Dosage: 6 MILLIGRAM, FOUR TIMES/DAY
     Route: 048
     Dates: start: 20190903, end: 20200212

REACTIONS (2)
  - Cardiac failure acute [Recovered/Resolved]
  - Atrioventricular block complete [Recovered/Resolved]

NARRATIVE: CASE EVENT DATE: 20200212
